FAERS Safety Report 7351543-2 (Version None)
Quarter: 2011Q1

REPORT INFORMATION
  Report Type: 
  Country: None (occurrence: None)
  Receive Date: 20110314
  Receipt Date: 20110304
  Transmission Date: 20110831
  Serious: Yes (Hospitalization)
  Sender: FDA-Public Use
  Company Number: US-RB-005999-10

PATIENT
  Age: 25 Year
  Sex: Female

DRUGS (1)
  1. SUBOXONE [Suspect]
     Indication: PRODUCT USED FOR UNKNOWN INDICATION
     Dosage: DOSING DETAILS UNKNOWN.
     Route: 065

REACTIONS (13)
  - OROPHARYNGEAL PAIN [None]
  - ORAL PAIN [None]
  - DRUG DEPENDENCE [None]
  - ANXIETY [None]
  - DYSPHONIA [None]
  - LARYNGITIS [None]
  - BACK PAIN [None]
  - GASTROENTERITIS VIRAL [None]
  - VOMITING [None]
  - DRY MOUTH [None]
  - PNEUMONIA [None]
  - HOSPITALISATION [None]
  - DEPRESSION [None]
